FAERS Safety Report 25224650 (Version 1)
Quarter: 2025Q2

REPORT INFORMATION
  Report Type: Spontaneous
  Country: US (occurrence: US)
  Receive Date: 20250422
  Receipt Date: 20250422
  Transmission Date: 20250716
  Serious: Yes (Hospitalization, Other)
  Sender: MERCK SHARP & DOHME LLC
  Company Number: US-009507513-2277183

PATIENT
  Age: 49 Year
  Sex: Male

DRUGS (3)
  1. PEMBROLIZUMAB [Suspect]
     Active Substance: PEMBROLIZUMAB
     Indication: Tonsil cancer
     Route: 065
     Dates: end: 202208
  2. PACLITAXEL [Concomitant]
     Active Substance: PACLITAXEL
     Indication: Tonsil cancer
     Route: 065
  3. CARBOPLATIN [Concomitant]
     Active Substance: CARBOPLATIN
     Indication: Tonsil cancer
     Route: 065

REACTIONS (2)
  - Gastric ulcer [Recovered/Resolved]
  - Immune-mediated gastritis [Recovered/Resolved]

NARRATIVE: CASE EVENT DATE: 20220101
